FAERS Safety Report 5036773-7 (Version None)
Quarter: 2006Q2

REPORT INFORMATION
  Report Type: 
  Country: None (occurrence: None)
  Receive Date: 20060628
  Receipt Date: 20060619
  Transmission Date: 20061013
  Serious: Yes (Hospitalization)
  Sender: FDA-Public Use
  Company Number: CA-JNJFOC-20060400542

PATIENT
  Sex: Male
  Weight: 54 kg

DRUGS (20)
  1. REMICADE [Suspect]
     Route: 042
  2. REMICADE [Suspect]
     Indication: RHEUMATOID ARTHRITIS
     Route: 042
  3. DURAGESIC-100 [Suspect]
     Indication: DRUG USE FOR UNKNOWN INDICATION
     Route: 062
  4. DILAUDID [Suspect]
     Indication: DRUG USE FOR UNKNOWN INDICATION
  5. BENADRYL [Concomitant]
     Indication: PREMEDICATION
     Route: 048
  6. TYLENOL (CAPLET) [Concomitant]
     Indication: PREMEDICATION
     Route: 048
  7. GRAVOL TAB [Concomitant]
     Indication: PREMEDICATION
     Route: 048
  8. SALAZOPYRIN [Concomitant]
  9. ARTHROTEC [Concomitant]
  10. SEMIDINE [Concomitant]
  11. NOVASEN [Concomitant]
  12. VITAMIN B6 [Concomitant]
  13. ISONIAZID [Concomitant]
  14. DIAZEPAM [Concomitant]
  15. DILTIAZEM HCL [Concomitant]
  16. AMYTAL [Concomitant]
  17. METHOTREXATE [Concomitant]
  18. VENTOLIN [Concomitant]
  19. NITRO [Concomitant]
  20. ANTIDEPRESSANT [Concomitant]

REACTIONS (13)
  - ANAEMIA [None]
  - CEREBROVASCULAR ACCIDENT [None]
  - DIABETIC COMA [None]
  - DIZZINESS [None]
  - FATIGUE [None]
  - GAIT DISTURBANCE [None]
  - HYPOGLYCAEMIA [None]
  - NAUSEA [None]
  - PNEUMONIA [None]
  - PYREXIA [None]
  - RECTAL HAEMORRHAGE [None]
  - VOMITING [None]
  - WEIGHT DECREASED [None]
